FAERS Safety Report 9838095 (Version 1)
Quarter: 2013Q4

REPORT INFORMATION
  Report Type: Spontaneous
  Country: US (occurrence: None)
  Receive Date: 20131205
  Receipt Date: 20131205
  Transmission Date: 20140711
  Serious: Yes (Other)
  Sender: FDA-Public Use
  Company Number: 163-POMAL-13103918

PATIENT
  Age: 51 Year
  Sex: Female

DRUGS (1)
  1. POMALYST [Suspect]
     Route: 048
     Dates: start: 201306

REACTIONS (2)
  - Dyspnoea [None]
  - Haemoglobin decreased [None]
